APPROVED DRUG PRODUCT: PLUVICTO
Active Ingredient: LUTETIUM LU-177 VIPIVOTIDE TETRAXETAN
Strength: 27mCi/ML
Dosage Form/Route: SOLUTION;INTRAVENOUS
Application: N215833 | Product #001
Applicant: NOVARTIS PHARMACEUTICALS CORP
Approved: Mar 23, 2022 | RLD: Yes | RS: Yes | Type: RX

PATENTS:
Patent 12208102 | Expires: Sep 18, 2041
Patent 11951190 | Expires: Nov 12, 2035
Patent 11318121 | Expires: Aug 15, 2028
Patent 10406240 | Expires: Aug 15, 2028
Patent 10398791 | Expires: Oct 17, 2034

EXCLUSIVITY:
Code: I-965 | Date: Mar 28, 2028
Code: NCE | Date: Mar 23, 2027